FAERS Safety Report 7788465-9 (Version None)
Quarter: 2011Q3

REPORT INFORMATION
  Report Type: 
  Country: None (occurrence: None)
  Receive Date: 20110928
  Receipt Date: 20110922
  Transmission Date: 20111222
  Serious: Yes (Hospitalization)
  Sender: FDA-Public Use
  Company Number: 2011SP045024

PATIENT
  Age: 61 Year
  Sex: Male

DRUGS (2)
  1. VICTRELIS [Suspect]
     Indication: HEPATITIS C
     Dosage: 800 MG; TID; PO
     Route: 048
     Dates: start: 20110901, end: 20110921
  2. PEG-INTRON [Suspect]
     Indication: HEPATITIS C

REACTIONS (1)
  - INTERSTITIAL LUNG DISEASE [None]
